FAERS Safety Report 20049847 (Version 2)
Quarter: 2021Q4

REPORT INFORMATION
  Report Type: Report from Study
  Country: NL (occurrence: NL)
  Receive Date: 20211109
  Receipt Date: 20211125
  Transmission Date: 20220303
  Serious: Yes (Other)
  Sender: FDA-Public Use
  Company Number: NL-KOREA IPSEN Pharma-2021-26723

PATIENT
  Age: 65 Year
  Sex: Male

DRUGS (1)
  1. LANREOTIDE ACETATE [Suspect]
     Active Substance: LANREOTIDE ACETATE
     Indication: Product used for unknown indication
     Dosage: 1.00 X PER 4 WEEKS
     Route: 058
     Dates: start: 20211001

REACTIONS (4)
  - Haemorrhage [Unknown]
  - Bile duct stenosis [Unknown]
  - Abdominal pain upper [Recovered/Resolved]
  - Faecal volume increased [Unknown]

NARRATIVE: CASE EVENT DATE: 20211001
